FAERS Safety Report 9893088 (Version 1)
Quarter: 2014Q1

REPORT INFORMATION
  Report Type: Spontaneous
  Country: JP (occurrence: JP)
  Receive Date: 20140213
  Receipt Date: 20140213
  Transmission Date: 20141002
  Serious: Yes (Other)
  Sender: FDA-Public Use
  Company Number: JP-BRISTOL-MYERS SQUIBB COMPANY-20143483

PATIENT
  Sex: Female
  Weight: 27 kg

DRUGS (1)
  1. ABATACEPT SUBQ INJECTION 125MG/ML [Suspect]
     Route: 058

REACTIONS (2)
  - Systemic lupus erythematosus disease activity index increased [Unknown]
  - Arthralgia [Unknown]
